FAERS Safety Report 8267952-3 (Version None)
Quarter: 2012Q2

REPORT INFORMATION
  Report Type: 
  Country: None (occurrence: None)
  Receive Date: 20120409
  Receipt Date: 20120404
  Transmission Date: 20120825
  Serious: Yes (Death)
  Sender: FDA-Public Use
  Company Number: PHHY2012HU017384

PATIENT
  Age: 65 Year
  Sex: Male

DRUGS (18)
  1. ONBREZ [Suspect]
     Indication: CHRONIC OBSTRUCTIVE PULMONARY DISEASE
     Dosage: 150 UG, UNK
     Dates: start: 20120207
  2. ATORIS (ATORVASTATIN) [Concomitant]
     Indication: HYPERCHOLESTEROLAEMIA
     Dosage: 1 DF, UNK
  3. SYNCUMAR [Concomitant]
     Indication: ANTICOAGULANT THERAPY
     Dosage: 1 DF, TID
  4. THEOSPIREX [Concomitant]
     Indication: ASTHMA
     Dosage: 2X1 TABLET DAILY DOSE
  5. RUTASCORBIN [Concomitant]
     Indication: SOFT TISSUE DISORDER
     Dosage: 1 DF, TID
  6. SPIRIVA [Concomitant]
     Indication: CHRONIC OBSTRUCTIVE PULMONARY DISEASE
     Dosage: 1 DF, UNK
  7. CORDARONE [Concomitant]
  8. MEDROL [Concomitant]
     Indication: CHRONIC OBSTRUCTIVE PULMONARY DISEASE
     Dosage: 1 DF, UNK
  9. CLOPIDOGREL [Concomitant]
     Indication: TRANSIENT ISCHAEMIC ATTACK
  10. BERODUAL [Concomitant]
     Indication: CHRONIC OBSTRUCTIVE PULMONARY DISEASE
     Dosage: 2*1 PUFF
  11. PANTOCID (PANTOPRAZOLE) [Concomitant]
     Indication: DYSPEPSIA
     Dosage: 1 DF, UNK
  12. VERAPAMIL [Concomitant]
  13. ANTICOAGULANTS [Concomitant]
  14. COVERAX [Concomitant]
     Indication: HYPERTENSION
     Dosage: 2*1 TABLET DAILY DOSE
  15. NOOTROPIL [Concomitant]
     Indication: CEREBRAL ARTERIOSCLEROSIS
     Dosage: 1-1-0 TABLET DAILY DOSE
  16. CITALOPRAM HYDROBROMIDE [Concomitant]
     Indication: DEPRESSION
     Dosage: 1 DF, UNK
  17. FRONTIN [Concomitant]
     Indication: DEPRESSION
     Dosage: 1 DF, TID
  18. ISOPTIN [Concomitant]
     Indication: MYOCARDIAL ISCHAEMIA
     Dosage: 1-0-0.5 TABLET DAILY DOSE

REACTIONS (5)
  - ARRHYTHMIA [None]
  - SUDDEN DEATH [None]
  - PALPITATIONS [None]
  - CARDIAC FAILURE [None]
  - CARDIAC ARREST [None]
